FAERS Safety Report 19697045 (Version 1)
Quarter: 2021Q3

REPORT INFORMATION
  Report Type: Spontaneous
  Country: US (occurrence: US)
  Receive Date: 20210813
  Receipt Date: 20210813
  Transmission Date: 20211014
  Serious: Yes (Hospitalization)
  Sender: FDA-Public Use
  Company Number: None

PATIENT
  Age: 17 Year
  Sex: Male
  Weight: 37 kg

DRUGS (4)
  1. ZINECARD [Suspect]
     Active Substance: DEXRAZOXANE HYDROCHLORIDE
     Dates: end: 20210730
  2. CISPLATIN. [Suspect]
     Active Substance: CISPLATIN
     Dates: end: 20210729
  3. NEXAVAR [Suspect]
     Active Substance: SORAFENIB
     Dates: end: 20210806
  4. DOXORUBICIN HYDROCHHLORIDE [Suspect]
     Active Substance: DOXORUBICIN HYDROCHLORIDE
     Dates: end: 20210730

REACTIONS (1)
  - Febrile neutropenia [None]

NARRATIVE: CASE EVENT DATE: 20210807
